FAERS Safety Report 5513588-4 (Version None)
Quarter: 2007Q4

REPORT INFORMATION
  Report Type: 
  Country: None (occurrence: None)
  Receive Date: 20071112
  Receipt Date: 20071109
  Transmission Date: 20080405
  Serious: No
  Sender: FDA-Public Use
  Company Number: US-BOEHRINGER INGELHEIM PHARMACEUTICALS, INC.-2006-BP-02489BP

PATIENT
  Sex: Female

DRUGS (31)
  1. MIRAPEX [Suspect]
     Indication: RESTLESS LEGS SYNDROME
     Route: 048
     Dates: start: 20010501, end: 20050801
  2. PREMPRO [Concomitant]
     Indication: HORMONE REPLACEMENT THERAPY
     Route: 048
     Dates: end: 20030219
  3. TAGAMET [Concomitant]
     Route: 048
     Dates: start: 19910204
  4. CELEBREX [Concomitant]
     Route: 048
     Dates: start: 20021126
  5. TEMAZEPAM [Concomitant]
     Indication: INSOMNIA
     Dates: start: 20021126
  6. DYAZIDE [Concomitant]
     Indication: ESSENTIAL HYPERTENSION
     Dates: start: 20020101
  7. ENALAPRIL MALEATE [Concomitant]
     Indication: ESSENTIAL HYPERTENSION
     Dates: start: 20021126
  8. VICODIN [Concomitant]
     Indication: ARTHRALGIA
     Route: 048
     Dates: start: 20030120
  9. PHENERGAN HCL [Concomitant]
     Indication: NAUSEA
     Route: 048
     Dates: start: 20030123
  10. VICODIN [Concomitant]
     Dates: start: 20030120
  11. PHENERGAN HCL [Concomitant]
     Dates: start: 20030112
  12. ALLEGRA [Concomitant]
     Indication: HYPERSENSITIVITY
     Route: 048
     Dates: start: 20030429
  13. MOBIC [Concomitant]
     Indication: BACK PAIN
     Dates: start: 20041229
  14. CLONAZEPAM [Concomitant]
     Route: 048
     Dates: start: 20050101
  15. NEURONTIN [Concomitant]
     Route: 048
     Dates: start: 20050801
  16. PATANOL [Concomitant]
     Dosage: 0.1 %
     Route: 061
     Dates: start: 20030312
  17. RHINOCORT AQUA NASAL SPRAY [Concomitant]
     Indication: HYPERSENSITIVITY
     Route: 045
     Dates: start: 20030311
  18. ZYRTEC [Concomitant]
     Indication: HYPERSENSITIVITY
     Route: 048
     Dates: start: 20050629
  19. VIOXX [Concomitant]
     Route: 048
     Dates: start: 20030205
  20. METHYLPREDNISOLONE [Concomitant]
     Dates: start: 20030205
  21. EFUDEX [Concomitant]
     Route: 061
     Dates: start: 20030228, end: 20030401
  22. PREDNISONE [Concomitant]
     Route: 048
     Dates: start: 20030421
  23. CLARINEX [Concomitant]
     Route: 048
     Dates: start: 20030311
  24. PROMETRIUM [Concomitant]
     Route: 048
     Dates: start: 20030228
  25. MENEST [Concomitant]
     Route: 048
     Dates: start: 20030228
  26. BEXTRA [Concomitant]
     Dates: start: 20020101
  27. EFFEXOR [Concomitant]
     Indication: HOT FLUSH
     Route: 048
     Dates: start: 20060609
  28. REQUIP [Concomitant]
     Dates: start: 20060101
  29. TRIAMTERENE AND HYDROCHLOROTHIAZIDE [Concomitant]
  30. TETNUS SHOT [Concomitant]
     Dates: start: 20060101
  31. TERAZOL 3 [Concomitant]
     Route: 067

REACTIONS (46)
  - ABDOMINAL DISCOMFORT [None]
  - ANXIETY [None]
  - ARTHRALGIA [None]
  - ARTHRITIS [None]
  - BACK PAIN [None]
  - BRONCHITIS [None]
  - CHONDROMALACIA [None]
  - COLON ADENOMA [None]
  - COLONIC POLYP [None]
  - COUGH [None]
  - DEPRESSION [None]
  - DERMOID CYST [None]
  - DRY SKIN [None]
  - EMOTIONAL DISTRESS [None]
  - ESSENTIAL HYPERTENSION [None]
  - GLUCOSE TOLERANCE IMPAIRED [None]
  - HAEMORRHOIDS [None]
  - HEADACHE [None]
  - HOT FLUSH [None]
  - HYPERPHAGIA [None]
  - INTERVERTEBRAL DISC PROTRUSION [None]
  - LOBAR PNEUMONIA [None]
  - LUMBAR SPINAL STENOSIS [None]
  - MUSCULAR WEAKNESS [None]
  - MUSCULOSKELETAL CHEST PAIN [None]
  - MUSCULOSKELETAL PAIN [None]
  - NAUSEA [None]
  - NIGHT SWEATS [None]
  - OVARIAN CYST [None]
  - PARAESTHESIA [None]
  - PATHOLOGICAL GAMBLING [None]
  - PELVIC CONGESTION [None]
  - PHARYNGITIS [None]
  - SEASONAL ALLERGY [None]
  - SOMNOLENCE [None]
  - SPINAL OSTEOARTHRITIS [None]
  - SYNOVIAL CYST [None]
  - TOOTH DISORDER [None]
  - TOOTH IMPACTED [None]
  - TOOTH INFECTION [None]
  - VAGINAL CANDIDIASIS [None]
  - VAGINAL HAEMORRHAGE [None]
  - VAGINAL INFECTION [None]
  - VISUAL DISTURBANCE [None]
  - VULVA CYST [None]
  - WEIGHT INCREASED [None]
